FAERS Safety Report 7059170-1 (Version None)
Quarter: 2010Q4

REPORT INFORMATION
  Report Type: 
  Country: None (occurrence: None)
  Receive Date: 20101025
  Receipt Date: 20101013
  Transmission Date: 20110411
  Serious: No
  Sender: FDA-Public Use
  Company Number: US-BIOGENIDEC-2010BI036198

PATIENT
  Age: 69 Year
  Sex: Male

DRUGS (4)
  1. TYSABRI [Suspect]
     Indication: MULTIPLE SCLEROSIS
     Route: 042
     Dates: start: 20050204, end: 20050101
  2. TYSABRI [Suspect]
     Route: 042
     Dates: start: 20061023, end: 20070131
  3. TYSABRI [Suspect]
     Route: 042
     Dates: start: 20080201
  4. MEDICATION (NOS) [Concomitant]

REACTIONS (2)
  - FATIGUE [None]
  - STRESS [None]
